FAERS Safety Report 7816448-9 (Version None)
Quarter: 2011Q4

REPORT INFORMATION
  Report Type: 
  Country: None (occurrence: None)
  Receive Date: 20111017
  Receipt Date: 20111003
  Transmission Date: 20120403
  Serious: Yes (Other)
  Sender: FDA-Public Use
  Company Number: PT-JNJFOC-20110908652

PATIENT
  Age: 55 Year
  Sex: Male

DRUGS (2)
  1. HYDROCORTISONE [Concomitant]
     Indication: PREMEDICATION
     Route: 042
  2. REMICADE [Suspect]
     Indication: CROHN'S DISEASE
     Route: 042
     Dates: start: 20100101

REACTIONS (6)
  - OXYGEN SATURATION DECREASED [None]
  - THERAPEUTIC RESPONSE DECREASED [None]
  - INFUSION RELATED REACTION [None]
  - MALAISE [None]
  - ABDOMINAL PAIN [None]
  - DRUG SPECIFIC ANTIBODY PRESENT [None]
